FAERS Safety Report 9333525 (Version 1)
Quarter: 2013Q2

REPORT INFORMATION
  Report Type: Spontaneous
  Country: US (occurrence: US)
  Receive Date: 20130606
  Receipt Date: 20130606
  Transmission Date: 20140414
  Serious: No
  Sender: FDA-Public Use
  Company Number: US-AMGEN-USASP2013003516

PATIENT
  Sex: Female

DRUGS (1)
  1. XGEVA [Suspect]
     Indication: BREAST CANCER METASTATIC
     Dosage: UNK
     Dates: start: 201206

REACTIONS (6)
  - Pain in extremity [Unknown]
  - Chills [Unknown]
  - Myalgia [Unknown]
  - Decreased appetite [Unknown]
  - Pallor [Unknown]
  - Discomfort [Unknown]
